FAERS Safety Report 23741988 (Version 2)
Quarter: 2024Q3

REPORT INFORMATION
  Report Type: Spontaneous
  Country: FR (occurrence: FR)
  Receive Date: 20240415
  Receipt Date: 20240712
  Transmission Date: 20241017
  Serious: Yes (Hospitalization)
  Sender: BRISTOL MYERS SQUIBB
  Company Number: FR-BRISTOL-MYERS SQUIBB COMPANY-2024-012083

PATIENT
  Age: 79 Year
  Sex: Female
  Weight: 60 kg

DRUGS (1)
  1. REBLOZYL [Suspect]
     Active Substance: LUSPATERCEPT-AAMT
     Indication: Myelodysplastic syndrome
     Route: 058
     Dates: start: 20231204, end: 20240115

REACTIONS (7)
  - Erythema [Not Recovered/Not Resolved]
  - Pruritus [Not Recovered/Not Resolved]
  - Psoriasis [Not Recovered/Not Resolved]
  - Dizziness [Recovered/Resolved with Sequelae]
  - Hypertension [Recovered/Resolved]
  - Fall [Unknown]
  - Intervertebral disc compression [Unknown]

NARRATIVE: CASE EVENT DATE: 20231201
